FAERS Safety Report 6258803-7 (Version None)
Quarter: 2009Q3

REPORT INFORMATION
  Report Type: 
  Country: None (occurrence: None)
  Receive Date: 20090707
  Receipt Date: 20090630
  Transmission Date: 20100115
  Serious: Yes (Disabling)
  Sender: FDA-Public Use
  Company Number: US-B.I. PHARMACEUTICALS,INC./RIDGEFIELD-2009-BP-07218BP

PATIENT
  Sex: Female
  Weight: 81.6 kg

DRUGS (5)
  1. MIRAPEX [Suspect]
     Indication: RESTLESS LEGS SYNDROME
  2. PROZAC [Concomitant]
  3. TRAZODONE HCL [Concomitant]
  4. LEVOTHYROXINE [Concomitant]
  5. ALPRAZOLAM [Concomitant]

REACTIONS (2)
  - DISABILITY [None]
  - UNDERDOSE [None]
